FAERS Safety Report 20101208 (Version 1)
Quarter: 2021Q4

REPORT INFORMATION
  Report Type: Report from Study
  Country: BR (occurrence: BR)
  Receive Date: 20211123
  Receipt Date: 20211123
  Transmission Date: 20220304
  Serious: Yes (Death, Other)
  Sender: FDA-Public Use
  Company Number: BR-NOVARTISPH-NVSC2021BR263893

PATIENT
  Age: 69 Year
  Sex: Female

DRUGS (11)
  1. RIBOCICLIB [Suspect]
     Active Substance: RIBOCICLIB
     Indication: Product used for unknown indication
     Dosage: 200 MG, (3 TABLETS OF 200MG FOR 21 DAYS EVERY 28 DAYS)
     Route: 065
  2. RIBOCICLIB [Suspect]
     Active Substance: RIBOCICLIB
     Dosage: 400 MG, QD (IN CYCLE 1)
     Route: 065
  3. RIBOCICLIB [Suspect]
     Active Substance: RIBOCICLIB
     Dosage: 200 MG, QD, (FOR 21 DAYS EVERY 28 DAYS)
     Route: 065
     Dates: start: 202011
  4. DOXORUBICIN [Suspect]
     Active Substance: DOXORUBICIN
     Indication: Product used for unknown indication
     Dosage: 60 MG/M2
     Route: 065
  5. PACLITAXEL [Suspect]
     Active Substance: PACLITAXEL
     Indication: Product used for unknown indication
     Dosage: 80 MG/M2
     Route: 065
     Dates: start: 201708, end: 201710
  6. ANASTROZOLE [Suspect]
     Active Substance: ANASTROZOLE
     Indication: Product used for unknown indication
     Dosage: UNK
     Route: 065
     Dates: start: 201710, end: 201902
  7. AFINITOR [Suspect]
     Active Substance: EVEROLIMUS
     Indication: Product used for unknown indication
     Dosage: 1 DF, QD
     Route: 065
  8. FULVESTRANT [Suspect]
     Active Substance: FULVESTRANT
     Indication: Product used for unknown indication
     Dosage: 500 MG, (14 DAY INTERVAL BETWEEN CYCLE 1 AND CYCLE 2 AND BETWEEN CYCLE 2 AND CYCLE 3)
     Route: 030
  9. CYCLOPHOSPHAMIDE [Concomitant]
     Active Substance: CYCLOPHOSPHAMIDE
     Indication: Product used for unknown indication
     Dosage: 600 MG/M2
     Route: 065
     Dates: end: 201705
  10. EXEMESTANE [Concomitant]
     Active Substance: EXEMESTANE
     Indication: Product used for unknown indication
     Dosage: 1 DF, QD
     Route: 065
     Dates: start: 201902
  11. DENOSUMAB [Concomitant]
     Active Substance: DENOSUMAB
     Indication: Product used for unknown indication
     Dosage: 120 MG, (EVERY 28 DAYS)
     Route: 058
     Dates: start: 201910

REACTIONS (13)
  - Death [Fatal]
  - Thrombocytopenia [Unknown]
  - Anaemia [Unknown]
  - Vomiting [Unknown]
  - Metastases to bone [Unknown]
  - Metastases to liver [Unknown]
  - Arthralgia [Unknown]
  - Pathological fracture [Unknown]
  - Bone lesion [Unknown]
  - Fatigue [Unknown]
  - Nausea [Unknown]
  - Diarrhoea [Unknown]
  - Drug ineffective [Unknown]

NARRATIVE: CASE EVENT DATE: 20190201
